FAERS Safety Report 22341015 (Version 2)
Quarter: 2024Q4

REPORT INFORMATION
  Report Type: Report from Study
  Country: US (occurrence: US)
  Receive Date: 20230518
  Receipt Date: 20241022
  Transmission Date: 20250114
  Serious: Yes (Other)
  Sender: JAZZ
  Company Number: US-JAZZ PHARMACEUTICALS-2023-US-007150

PATIENT
  Sex: Female

DRUGS (3)
  1. XYREM [Suspect]
     Active Substance: SODIUM OXYBATE
     Indication: Narcolepsy
     Dosage: 2.25 GRAM, BID
  2. XYREM [Suspect]
     Active Substance: SODIUM OXYBATE
     Dosage: 2.75 GRAM, BID
  3. XYREM [Suspect]
     Active Substance: SODIUM OXYBATE
     Dosage: 3 GRAM, BID

REACTIONS (19)
  - Ovarian cancer [Unknown]
  - Lip and/or oral cavity cancer [Unknown]
  - Hysterectomy [Unknown]
  - Osteopenia [Unknown]
  - Feeling abnormal [Unknown]
  - Fatigue [Unknown]
  - Somnolence [Unknown]
  - Endometriosis [Unknown]
  - Premature menopause [Unknown]
  - Benign breast neoplasm [Unknown]
  - Rhinitis [Unknown]
  - Weight increased [Unknown]
  - Atrophic vulvovaginitis [Unknown]
  - Exposure during pregnancy [Unknown]
  - Drug ineffective [Unknown]
  - Product administration interrupted [Unknown]
  - Drug intolerance [Unknown]
  - Intentional product use issue [Unknown]
  - Intentional dose omission [Unknown]
